FAERS Safety Report 17107281 (Version 1)
Quarter: 2019Q4

REPORT INFORMATION
  Report Type: Spontaneous
  Country: FR (occurrence: FR)
  Receive Date: 20191203
  Receipt Date: 20191203
  Transmission Date: 20200122
  Serious: Yes (Hospitalization)
  Sender: FDA-Public Use
  Company Number: FR-MYLANLABS-2019M1116675

PATIENT
  Age: 66 Year
  Sex: Male

DRUGS (5)
  1. ASPEGIC                            /00002703/ [Concomitant]
     Active Substance: ASPIRIN DL-LYSINE
     Indication: STENT PATENCY MAINTENANCE
     Dosage: UNK
     Route: 048
     Dates: start: 201806
  2. FOLIC ACID. [Suspect]
     Active Substance: FOLIC ACID
     Indication: PSORIASIS
     Dosage: 10 MILLIGRAM, QD
     Route: 048
     Dates: start: 20190125
  3. PLAVIX [Concomitant]
     Active Substance: CLOPIDOGREL BISULFATE
     Indication: STENT PATENCY MAINTENANCE
     Dosage: UNK
     Route: 048
     Dates: start: 201806
  4. MOPRAL                             /00661203/ [Concomitant]
     Active Substance: OMEPRAZOLE MAGNESIUM
     Dosage: UNK
     Route: 048
  5. METHOTREXATE. [Suspect]
     Active Substance: METHOTREXATE
     Indication: PSORIASIS
     Dosage: 20 MILLIGRAM, QW
     Route: 058
     Dates: start: 20190125

REACTIONS (3)
  - Vomiting [Recovering/Resolving]
  - Abdominal pain [Recovering/Resolving]
  - Haematemesis [Recovering/Resolving]

NARRATIVE: CASE EVENT DATE: 201902
